FAERS Safety Report 8665666 (Version 2)
Quarter: 2014Q1

REPORT INFORMATION
  Report Type: Spontaneous
  Country: US (occurrence: US)
  Receive Date: 20120716
  Receipt Date: 20140113
  Transmission Date: 20141002
  Serious: Yes (Other)
  Sender: FDA-Public Use
  Company Number: US-PFIZER INC-2012169758

PATIENT
  Age: 59 Year
  Sex: Female
  Weight: 59.41 kg

DRUGS (7)
  1. EFFEXOR XR [Suspect]
     Dosage: 75 MG, DAILY
  2. EFFEXOR XR [Suspect]
     Dosage: UNK
  3. CARISOPRODOL [Concomitant]
     Indication: MUSCLE RELAXANT THERAPY
     Dosage: 350 MG, 2X/DAY
  4. HYDROCODONE [Concomitant]
     Indication: GAIT DISTURBANCE
     Dosage: 3/500 MG FOUR TIMES A DAY
  5. TRAZODONE [Concomitant]
     Indication: ANXIETY
     Dosage: 50 MG, 3X/DAY
  6. TRAZODONE [Concomitant]
     Indication: DEPRESSION
  7. MELOXICAM [Concomitant]
     Indication: ANTIINFLAMMATORY THERAPY
     Dosage: 15 MG, DAILY

REACTIONS (7)
  - Confusional state [Recovered/Resolved]
  - Disturbance in attention [Recovered/Resolved]
  - Crying [Recovered/Resolved]
  - Hypotension [Unknown]
  - Stress [Unknown]
  - Emotional disorder [Unknown]
  - Hypertension [Unknown]
